FAERS Safety Report 6991398-9 (Version None)
Quarter: 2010Q3

REPORT INFORMATION
  Report Type: 
  Country: None (occurrence: None)
  Receive Date: 20100916
  Receipt Date: 20090820
  Transmission Date: 20110219
  Serious: No
  Sender: FDA-Public Use
  Company Number: US-WYE-H10668009

PATIENT
  Sex: Female
  Weight: 90.8 kg

DRUGS (3)
  1. PRISTIQ [Suspect]
     Indication: DEPRESSION
     Dosage: 50 MG INCREASED TO 100 MG, DAILY
     Route: 048
     Dates: start: 20090701
  2. AMBIEN [Concomitant]
     Dosage: DOSE UNKNOWN, DAILY
     Route: 048
  3. KLONOPIN [Concomitant]
     Dosage: DOSE UNKNOWN, DAILY
     Route: 048

REACTIONS (1)
  - CHEST PAIN [None]
